FAERS Safety Report 4394457-2 (Version None)
Quarter: 2004Q3

REPORT INFORMATION
  Report Type: 
  Country: None (occurrence: None)
  Receive Date: 20040707
  Receipt Date: 20040621
  Transmission Date: 20050211
  Serious: Yes (Hospitalization)
  Sender: FDA-Public Use
  Company Number: 200249

PATIENT
  Age: 50 Year
  Sex: Female
  Weight: 106.1417 kg

DRUGS (1)
  1. AVONEX [Suspect]
     Indication: MULTIPLE SCLEROSIS
     Dosage: 30 MCG QW; IM
     Route: 030
     Dates: start: 19990101

REACTIONS (7)
  - ASTHENIA [None]
  - CONDITION AGGRAVATED [None]
  - INTERVERTEBRAL DISC DEGENERATION [None]
  - OBESITY [None]
  - PROTHROMBIN TIME PROLONGED [None]
  - SPINAL COLUMN STENOSIS [None]
  - URINARY INCONTINENCE [None]
